FAERS Safety Report 19561693 (Version 1)
Quarter: 2021Q3

REPORT INFORMATION
  Report Type: Spontaneous
  Country: JP (occurrence: JP)
  Receive Date: 20210715
  Receipt Date: 20210715
  Transmission Date: 20211014
  Serious: Yes (Death, Hospitalization)
  Sender: FDA-Public Use
  Company Number: JP-PFIZER INC-2021800804

PATIENT
  Age: 48 Year
  Sex: Male

DRUGS (6)
  1. PACLITAXEL. [Suspect]
     Active Substance: PACLITAXEL
     Indication: TESTIS CANCER
  2. IFOSFAMIDE. [Suspect]
     Active Substance: IFOSFAMIDE
     Indication: METASTASES TO LYMPH NODES
     Dosage: UNK, CYCLIC (4 CYCLICAL)
  3. IFOSFAMIDE. [Suspect]
     Active Substance: IFOSFAMIDE
     Indication: TESTIS CANCER
  4. CISPLATIN. [Suspect]
     Active Substance: CISPLATIN
     Indication: METASTASES TO LYMPH NODES
     Dosage: UNK, CYCLIC (4 CYCLICAL)
  5. PACLITAXEL. [Suspect]
     Active Substance: PACLITAXEL
     Indication: METASTASES TO LYMPH NODES
     Dosage: UNK, CYCLIC (4 CYCLICAL)
  6. CISPLATIN. [Suspect]
     Active Substance: CISPLATIN
     Indication: TESTIS CANCER

REACTIONS (1)
  - Aortoenteric fistula [Fatal]
